FAERS Safety Report 8433068 (Version 2)
Quarter: 2014Q2

REPORT INFORMATION
  Report Type: Spontaneous
  Country: US (occurrence: US)
  Receive Date: 20120229
  Receipt Date: 20140624
  Transmission Date: 20141212
  Serious: Yes (Other)
  Sender: FDA-Public Use
  Company Number: US-ROCHE-789009

PATIENT
  Age: 21 Year
  Sex: Female
  Weight: 59.02 kg

DRUGS (2)
  1. ACCUTANE [Suspect]
     Indication: RASH
     Route: 065
     Dates: start: 1997, end: 1998
  2. ACCUTANE [Suspect]
     Route: 065
     Dates: start: 19971030, end: 19980420

REACTIONS (8)
  - Inflammatory bowel disease [Unknown]
  - Fibromyalgia [Unknown]
  - Irritable bowel syndrome [Unknown]
  - Crohn^s disease [Unknown]
  - Depression [Unknown]
  - Colitis ulcerative [Unknown]
  - Headache [Unknown]
  - Acne [Unknown]
